FAERS Safety Report 5899029-6 (Version None)
Quarter: 2008Q3

REPORT INFORMATION
  Report Type: 
  Country: None (occurrence: None)
  Receive Date: 20080925
  Receipt Date: 20080913
  Transmission Date: 20090109
  Serious: Yes (Other)
  Sender: FDA-Public Use
  Company Number: US-PFIZER INC-2008078552

PATIENT
  Sex: Female
  Weight: 69.09 kg

DRUGS (6)
  1. CHANTIX [Suspect]
     Indication: SMOKING CESSATION THERAPY
     Dates: start: 20080101, end: 20080101
  2. CELEBREX [Concomitant]
  3. HYDROCORTISONE [Concomitant]
  4. ATIVAN [Concomitant]
     Indication: ANXIETY
  5. PROPRANOLOL [Concomitant]
     Indication: PALPITATIONS
  6. PROPRANOLOL [Concomitant]
     Indication: BLOOD PRESSURE

REACTIONS (4)
  - AGGRESSION [None]
  - AGITATION [None]
  - INSOMNIA [None]
  - PERSONALITY CHANGE [None]
